FAERS Safety Report 9539887 (Version 1)
Quarter: 2013Q2

REPORT INFORMATION
  Report Type: Spontaneous
  Country: US (occurrence: None)
  Receive Date: 20130524
  Receipt Date: 20130524
  Transmission Date: 20140414
  Serious: Yes (Other)
  Sender: FDA-Public Use
  Company Number: PHEH2013US001654

PATIENT
  Sex: Female

DRUGS (5)
  1. GILENYA (FINGOLIMOD) CAPSULE, 0.5MG [Suspect]
     Indication: MULTIPLE SCLEROSIS
     Route: 048
     Dates: start: 20120912
  2. LOSARTAN (LOSARTAN) [Concomitant]
  3. BACLOFEN (BACLOFEN) [Concomitant]
  4. TIZANIDINE (TIZANIDINE) [Concomitant]
  5. KLONOPIN (CLONAZEPAM) (TABLETS) [Concomitant]

REACTIONS (5)
  - Hypertension [None]
  - Pain in extremity [None]
  - Chest pain [None]
  - Hypoaesthesia [None]
  - Headache [None]
